FAERS Safety Report 6475972-4 (Version None)
Quarter: 2009Q4

REPORT INFORMATION
  Report Type: 
  Country: None (occurrence: None)
  Receive Date: 20091204
  Receipt Date: 20090108
  Transmission Date: 20100525
  Serious: No
  Sender: FDA-Public Use
  Company Number: US-AMGEN-KDL327636

PATIENT
  Sex: Female
  Weight: 63.6 kg

DRUGS (6)
  1. ENBREL [Suspect]
     Indication: RHEUMATOID ARTHRITIS
     Route: 058
     Dates: start: 20070108, end: 20090113
  2. LEFLUNOMIDE [Concomitant]
     Dates: start: 20070716, end: 20081203
  3. XANAX [Concomitant]
     Dates: start: 20070827, end: 20080401
  4. CYMBALTA [Concomitant]
     Dates: start: 20070813, end: 20080407
  5. TALACEN [Concomitant]
     Dates: start: 20071016, end: 20081203
  6. FOSAMAX [Concomitant]
     Dates: start: 20080807

REACTIONS (7)
  - EAR INFECTION [None]
  - EYE SWELLING [None]
  - FOLLICULITIS [None]
  - INSOMNIA [None]
  - RASH PRURITIC [None]
  - SINUSITIS [None]
  - STAPHYLOCOCCAL INFECTION [None]
